FAERS Safety Report 23639470 (Version 1)
Quarter: 2024Q1

REPORT INFORMATION
  Report Type: Spontaneous
  Country: NL (occurrence: NL)
  Receive Date: 20240316
  Receipt Date: 20240316
  Transmission Date: 20240410
  Serious: Yes (Life-Threatening)
  Sender: FDA-Public Use
  Company Number: None

PATIENT
  Age: 44 Year
  Sex: Female
  Weight: 81 kg

DRUGS (1)
  1. HYDROCORTISONE [Suspect]
     Active Substance: HYDROCORTISONE
     Indication: Adrenal insufficiency
     Dosage: 1 PIECE ONCE A DAY, HYDROCORTISON TABLET 1MG / TABLET FILM COVER 1MG
     Route: 065
     Dates: start: 20231220, end: 20240101

REACTIONS (2)
  - Adrenocortical insufficiency acute [Recovered/Resolved]
  - Product substitution issue [Unknown]
